FAERS Safety Report 17866793 (Version 1)
Quarter: 2020Q2

REPORT INFORMATION
  Report Type: Spontaneous
  Country: FR (occurrence: FR)
  Receive Date: 20200605
  Receipt Date: 20200605
  Transmission Date: 20200714
  Serious: Yes (Other)
  Sender: FDA-Public Use
  Company Number: FR-TEVA-2020-FR-1244775

PATIENT
  Age: 66 Year
  Sex: Female
  Weight: 56 kg

DRUGS (1)
  1. EZETIMIBE/SIMVASTATINE TEVA 10 MG/20 MG, COMPRIME [Suspect]
     Active Substance: EZETIMIBE\SIMVASTATIN
     Indication: HYPERCHOLESTEROLAEMIA
     Dosage: 1 DOSAGE FORMS
     Route: 048
     Dates: start: 20160101, end: 20191128

REACTIONS (6)
  - Muscle spasms [Recovering/Resolving]
  - Gastric disorder [Recovering/Resolving]
  - Myalgia [Recovering/Resolving]
  - Transaminases increased [Recovering/Resolving]
  - Vomiting [Recovering/Resolving]
  - Hypogammaglobulinaemia [Recovering/Resolving]

NARRATIVE: CASE EVENT DATE: 20191104
